FAERS Safety Report 8809785 (Version 1)
Quarter: 2012Q4

REPORT INFORMATION
  Report Type: 
  Country: IE (occurrence: IE)
  Receive Date: 20120926
  Receipt Date: 20120926
  Transmission Date: 20130627
  Serious: Yes (Other)
  Sender: FDA-Public Use
  Company Number: IE-MYLANLABS-2012S1019368

PATIENT
  Age: 71 Year
  Sex: Male

DRUGS (1)
  1. FLUOROURACIL [Suspect]
     Indication: COLON CANCER
     Route: 065

REACTIONS (1)
  - Cutaneous lupus erythematosus [Unknown]
